FAERS Safety Report 10394166 (Version 1)
Quarter: 2014Q3

REPORT INFORMATION
  Report Type: Spontaneous
  Country: ZA (occurrence: ZA)
  Receive Date: 20140819
  Receipt Date: 20140819
  Transmission Date: 20150326
  Serious: Yes (Other)
  Sender: FDA-Public Use
  Company Number: PHHY2013ZA161569

PATIENT
  Sex: Female

DRUGS (3)
  1. TAREG [Suspect]
     Active Substance: VALSARTAN
     Indication: HYPERTENSION
     Dosage: 160 MG, DAILY
  2. INDAPAMIDE SANDOZ [Concomitant]
     Active Substance: INDAPAMIDE
     Indication: HYPERTENSION
  3. ADALAT CC [Concomitant]
     Active Substance: NIFEDIPINE
     Indication: HYPERTENSION

REACTIONS (2)
  - Blood pressure increased [Unknown]
  - Hypertension [Unknown]
